FAERS Safety Report 6433009-7 (Version None)
Quarter: 2009Q4

REPORT INFORMATION
  Report Type: 
  Country: None (occurrence: None)
  Receive Date: 20091109
  Receipt Date: 20091028
  Transmission Date: 20100525
  Serious: Yes (Other)
  Sender: FDA-Public Use
  Company Number: US-ELI_LILLY_AND_COMPANY-US200910007731

PATIENT
  Sex: Male

DRUGS (2)
  1. CIALIS [Suspect]
     Dosage: UNK, UNKNOWN
     Route: 065
     Dates: start: 20090403
  2. FLOMAX [Concomitant]

REACTIONS (4)
  - ARTHRALGIA [None]
  - BENIGN PROSTATIC HYPERPLASIA [None]
  - DRUG INEFFECTIVE [None]
  - HIP ARTHROPLASTY [None]
